FAERS Safety Report 11338102 (Version 1)
Quarter: 2015Q3

REPORT INFORMATION
  Report Type: Spontaneous
  Country: US (occurrence: US)
  Receive Date: 20150803
  Receipt Date: 20150803
  Transmission Date: 20151125
  Serious: Yes (Other)
  Sender: FDA-Public Use
  Company Number: US-ELI_LILLY_AND_COMPANY-USA050290458

PATIENT
  Sex: Female

DRUGS (3)
  1. ZYPREXA [Suspect]
     Active Substance: OLANZAPINE
     Indication: PANIC DISORDER
     Dosage: UNK, UNKNOWN
     Dates: start: 1999, end: 2003
  2. ZYPREXA [Suspect]
     Active Substance: OLANZAPINE
     Dates: start: 2003
  3. EFFEXOR XR [Concomitant]
     Active Substance: VENLAFAXINE HYDROCHLORIDE
     Dosage: UNK, UNKNOWN
     Dates: start: 1999

REACTIONS (4)
  - Agitation [Unknown]
  - Increased appetite [Not Recovered/Not Resolved]
  - Diabetes mellitus [Unknown]
  - Weight increased [Not Recovered/Not Resolved]

NARRATIVE: CASE EVENT DATE: 1999
